FAERS Safety Report 7076980-5 (Version None)
Quarter: 2010Q4

REPORT INFORMATION
  Report Type: 
  Country: None (occurrence: None)
  Receive Date: 20101101
  Receipt Date: 20101022
  Transmission Date: 20110411
  Serious: Yes (Other)
  Sender: FDA-Public Use
  Company Number: AU-JNJCH-2010024573

PATIENT
  Age: 8 Year
  Sex: Male

DRUGS (1)
  1. BENADRYL [Suspect]
     Indication: COUGH
     Dosage: TEXT:RECOMMENDED DOSAGE ONCE OR TWICE DAILY
     Route: 048
     Dates: start: 20100915, end: 20100901

REACTIONS (3)
  - FREQUENT BOWEL MOVEMENTS [None]
  - HALLUCINATION [None]
  - HEART RATE INCREASED [None]
